FAERS Safety Report 7060044-0 (Version None)
Quarter: 2010Q4

REPORT INFORMATION
  Report Type: 
  Country: None (occurrence: None)
  Receive Date: 20101025
  Receipt Date: 20100407
  Transmission Date: 20110411
  Serious: No
  Sender: FDA-Public Use
  Company Number: US-BRISTOL-MYERS SQUIBB COMPANY-15053044

PATIENT
  Age: 26 Year
  Sex: Male

DRUGS (2)
  1. ABILIFY [Suspect]
     Dosage: DOSE DECREASED : 5 MG
     Route: 048
  2. BUSPAR [Suspect]

REACTIONS (1)
  - PHOTOPHOBIA [None]
